FAERS Safety Report 18689126 (Version 1)
Quarter: 2020Q4

REPORT INFORMATION
  Report Type: Spontaneous
  Country: CN (occurrence: CN)
  Receive Date: 20201231
  Receipt Date: 20201231
  Transmission Date: 20210114
  Serious: Yes (Hospitalization, Other)
  Sender: FDA-Public Use
  Company Number: CN-GRANULES-CN-2020GRALIT00115

PATIENT
  Age: 34 Year
  Sex: Male

DRUGS (4)
  1. DOPAMINE [Interacting]
     Active Substance: DOPAMINE HYDROCHLORIDE
     Indication: BLOOD PRESSURE MEASUREMENT
     Route: 065
  2. SODIUM BICARBONATE. [Interacting]
     Active Substance: SODIUM BICARBONATE
     Indication: HYPONATRAEMIA
     Route: 065
  3. COLCHICINE. [Suspect]
     Active Substance: COLCHICINE
     Indication: GOUT
     Dosage: TOOK 20 TABLETS OF ORAL COLCHICINE 0.5 MG/TABLET, ONE TABLET PER HOUR
     Route: 048
  4. METHYLPREDNISOLONE. [Interacting]
     Active Substance: METHYLPREDNISOLONE
     Indication: CENTRAL NERVOUS SYSTEM LESION
     Route: 065

REACTIONS (8)
  - Shock [Recovering/Resolving]
  - Hyponatraemia [Recovering/Resolving]
  - Demyelination [Recovering/Resolving]
  - Toxicity to various agents [Recovering/Resolving]
  - Intentional overdose [Unknown]
  - Vomiting [Recovering/Resolving]
  - Nausea [Recovering/Resolving]
  - Osmotic demyelination syndrome [Recovering/Resolving]
